FAERS Safety Report 18790577 (Version 1)
Quarter: 2021Q1

REPORT INFORMATION
  Report Type: Spontaneous
  Country: US (occurrence: US)
  Receive Date: 20210126
  Receipt Date: 20210126
  Transmission Date: 20210419
  Serious: Yes (Other)
  Sender: FDA-Public Use
  Company Number: US-GLAXOSMITHKLINE-US2021GSK018058

PATIENT
  Sex: Male

DRUGS (2)
  1. RANITIDINE. [Suspect]
     Active Substance: RANITIDINE
     Indication: COELIAC DISEASE
     Dosage: UNK, QD
     Route: 065
     Dates: start: 201501, end: 202001
  2. RANITIDINE. [Suspect]
     Active Substance: RANITIDINE
     Indication: COELIAC DISEASE
     Dosage: UNK, QD
     Route: 065
     Dates: start: 201501, end: 202001

REACTIONS (1)
  - Prostate cancer [Unknown]
